FAERS Safety Report 4356913-2 (Version None)
Quarter: 2004Q2

REPORT INFORMATION
  Report Type: 
  Country: None (occurrence: None)
  Receive Date: 20040507
  Receipt Date: 20040423
  Transmission Date: 20050107
  Serious: Yes (Death, Hospitalization)
  Sender: FDA-Public Use
  Company Number: A03200401286

PATIENT
  Age: 31 Year
  Sex: Female
  Weight: 106 kg

DRUGS (9)
  1. PLAQUENIL [Suspect]
     Indication: SYSTEMIC LUPUS ERYTHEMATOSUS
     Dosage: 400 MG - ORAL
     Route: 048
  2. WARFARIN SODIUM [Concomitant]
  3. DIGOXIN [Concomitant]
  4. FUROSEMIDE [Concomitant]
  5. POTASSIUM CHLORIDE [Concomitant]
  6. GLIPIZIDE [Concomitant]
  7. ENALAPRIL MALEATE [Concomitant]
  8. METOCLOPRAMIDE [Concomitant]
  9. LANSOPRAZOLE [Concomitant]

REACTIONS (41)
  - ADRENAL CORTEX ATROPHY [None]
  - ANTINUCLEAR ANTIBODY POSITIVE [None]
  - ARTERIAL OCCLUSIVE DISEASE [None]
  - BLADDER DISORDER [None]
  - BLOOD CREATINE PHOSPHOKINASE INCREASED [None]
  - BLOOD SODIUM DECREASED [None]
  - BLOOD UREA INCREASED [None]
  - CARDIAC ARREST [None]
  - CARDIAC DISORDER [None]
  - CARDIAC FAILURE CONGESTIVE [None]
  - CARDIAC MYXOMA [None]
  - CARDIOMEGALY [None]
  - CARDIOMYOPATHY [None]
  - CHEST PAIN [None]
  - COMA [None]
  - DIZZINESS [None]
  - EJECTION FRACTION DECREASED [None]
  - GLOMERULOSCLEROSIS [None]
  - HEPATIC CONGESTION [None]
  - HEPATIC ENZYME INCREASED [None]
  - HYPOTENSION [None]
  - ILIAC VEIN OCCLUSION [None]
  - MITRAL VALVE DISEASE [None]
  - MYOPATHY [None]
  - NEUROPATHY PERIPHERAL [None]
  - PALPITATIONS [None]
  - PERIPHERAL OCCLUSIVE DISEASE [None]
  - PETECHIAE [None]
  - PLEURAL ADHESION [None]
  - PLEURAL EFFUSION [None]
  - PULMONARY CONGESTION [None]
  - PULMONARY EMBOLISM [None]
  - PULMONARY INFARCTION [None]
  - PYREXIA [None]
  - RECTAL ULCER [None]
  - SPLEEN CONGESTION [None]
  - SPLENOMEGALY [None]
  - SUBCLAVIAN VEIN THROMBOSIS [None]
  - SYSTEMIC LUPUS ERYTHEMATOSUS [None]
  - TRACHEAL ULCER [None]
  - VENTRICULAR TACHYCARDIA [None]
